FAERS Safety Report 5635839-8 (Version None)
Quarter: 2008Q1

REPORT INFORMATION
  Report Type: 
  Country: None (occurrence: None)
  Receive Date: 20080221
  Receipt Date: 20080219
  Transmission Date: 20080703
  Serious: Yes (Death, Hospitalization, Other)
  Sender: FDA-Public Use
  Company Number: THQ2008A00393

PATIENT
  Age: 74 Year
  Sex: Male

DRUGS (1)
  1. LEUPROLIDE ACETATE [Suspect]
     Indication: PROSTATE CANCER
     Dosage: 3.75 DF (3.75 DF, 1 IN 1 M)
     Dates: start: 20050705, end: 20070117

REACTIONS (6)
  - ANURIA [None]
  - CARDIAC FAILURE [None]
  - CARDIOGENIC SHOCK [None]
  - HYPERVENTILATION [None]
  - LACTIC ACIDOSIS [None]
  - PULMONARY EMBOLISM [None]
